FAERS Safety Report 9704377 (Version 2)
Quarter: 2013Q4

REPORT INFORMATION
  Report Type: Report from Study
  Country: FR (occurrence: FR)
  Receive Date: 20131122
  Receipt Date: 20131122
  Transmission Date: 20140711
  Serious: Yes (Hospitalization)
  Sender: FDA-Public Use
  Company Number: FR-SA-2013SA106698

PATIENT
  Age: 71 Year
  Sex: Male
  Weight: 71 kg

DRUGS (3)
  1. ELIGARD [Suspect]
     Indication: PRODUCT USED FOR UNKNOWN INDICATION
     Route: 058
     Dates: start: 20120126, end: 20130403
  2. DIAMICRON [Concomitant]
     Indication: TYPE 2 DIABETES MELLITUS
     Dosage: 30 MG 3 IN THE MORNING
  3. GLUCOPHAGE [Concomitant]
     Indication: TYPE 2 DIABETES MELLITUS
     Dosage: DOSE: 1 (UNITS NOT SPECIFIED)

REACTIONS (2)
  - Ventricular arrhythmia [Recovered/Resolved]
  - Coronary artery stenosis [Unknown]
